FAERS Safety Report 4683361-8 (Version None)
Quarter: 2005Q2

REPORT INFORMATION
  Report Type: 
  Country: None (occurrence: None)
  Receive Date: 20050606
  Receipt Date: 20050606
  Transmission Date: 20051028
  Serious: Yes (Disabling)
  Sender: FDA-Public Use
  Company Number: None

PATIENT
  Age: 42 Year
  Sex: Female
  Weight: 111.1313 kg

DRUGS (3)
  1. PROVIGIL [Suspect]
     Indication: ATTENTION DEFICIT/HYPERACTIVITY DISORDER
     Dosage: 1 DAY ORAL
     Route: 048
     Dates: start: 20050404, end: 20050412
  2. PROVIGIL [Suspect]
     Indication: NARCOLEPSY
     Dosage: 1 DAY ORAL
     Route: 048
     Dates: start: 20050404, end: 20050412
  3. NATURAL THYROID ADVAIR [Concomitant]

REACTIONS (3)
  - BACK PAIN [None]
  - MUSCLE SPASMS [None]
  - NECK PAIN [None]
